FAERS Safety Report 18840848 (Version 1)
Quarter: 2021Q1

REPORT INFORMATION
  Report Type: Spontaneous
  Country: ES (occurrence: ES)
  Receive Date: 20210204
  Receipt Date: 20210204
  Transmission Date: 20210419
  Serious: Yes (Hospitalization)
  Sender: FDA-Public Use
  Company Number: ES-B.I. PHARMACEUTICALS,INC./RIDGEFIELD-2021-BI-079406

PATIENT
  Age: 84 Year
  Sex: Male

DRUGS (3)
  1. PRAXBIND [Suspect]
     Active Substance: IDARUCIZUMAB
     Indication: PROCOAGULANT THERAPY
     Dosage: FIRST DOSE, AT DAWN (2 VIALS)
     Dates: start: 20210121, end: 20210121
  2. PRAXBIND [Suspect]
     Active Substance: IDARUCIZUMAB
     Dosage: THIRD DOSE (2 VIALS)
     Dates: start: 20210124, end: 20210124
  3. PRAXBIND [Suspect]
     Active Substance: IDARUCIZUMAB
     Dosage: SECOND DOSE, AT NOON (2 VIALS)
     Dates: start: 20210122, end: 20210122

REACTIONS (3)
  - Coagulopathy [Recovered/Resolved]
  - Coagulopathy [Recovered/Resolved]
  - Coagulopathy [Not Recovered/Not Resolved]

NARRATIVE: CASE EVENT DATE: 20210121
